FAERS Safety Report 6004560-9 (Version None)
Quarter: 2008Q4

REPORT INFORMATION
  Report Type: 
  Country: None (occurrence: None)
  Receive Date: 20081216
  Receipt Date: 20081209
  Transmission Date: 20090506
  Serious: Yes (Hospitalization)
  Sender: FDA-Public Use
  Company Number: US-ASTRAZENECA-2008UW27298

PATIENT
  Age: 41 Year
  Sex: Female

DRUGS (2)
  1. SEROQUEL [Suspect]
     Route: 048
     Dates: start: 20061209
  2. SEROQUEL [Suspect]
     Route: 048
     Dates: start: 20081101

REACTIONS (2)
  - DRUG ADMINISTRATION ERROR [None]
  - HOSPITALISATION [None]
